FAERS Safety Report 16136175 (Version 1)
Quarter: 2019Q1

REPORT INFORMATION
  Report Type: Spontaneous
  Country: JP (occurrence: JP)
  Receive Date: 20190329
  Receipt Date: 20190329
  Transmission Date: 20190418
  Serious: Yes (Other)
  Sender: FDA-Public Use
  Company Number: JP-GUERBET-JP-20190038

PATIENT
  Age: 56 Year
  Sex: Male

DRUGS (1)
  1. MAGNESCOPE INTRAVENOUS INJECTION 38% SYRINGE 10ML [Suspect]
     Active Substance: GADOTERATE MEGLUMINE
     Indication: NUCLEAR MAGNETIC RESONANCE IMAGING BRAIN
     Route: 042
     Dates: start: 20190308, end: 20190308

REACTIONS (2)
  - Seizure [Recovered/Resolved]
  - Altered state of consciousness [Recovered/Resolved]

NARRATIVE: CASE EVENT DATE: 20190308
